FAERS Safety Report 6047966-4 (Version None)
Quarter: 2009Q1

REPORT INFORMATION
  Report Type: 
  Country: None (occurrence: None)
  Receive Date: 20090123
  Receipt Date: 20090108
  Transmission Date: 20090719
  Serious: Yes (Other)
  Sender: FDA-Public Use
  Company Number: PHHY2009IT02128

PATIENT
  Sex: Female

DRUGS (2)
  1. FORMOTEROL FUMARATE [Suspect]
     Indication: ASTHMA
     Dosage: 24 UG, UNK
     Dates: start: 20080905
  2. FORMOTEROL FUMARATE [Suspect]
     Dosage: 12 UG
     Dates: start: 20080902

REACTIONS (1)
  - TACHYCARDIA [None]
